FAERS Safety Report 6856020-0 (Version None)
Quarter: 2010Q3

REPORT INFORMATION
  Report Type: 
  Country: None (occurrence: None)
  Receive Date: 20100719
  Receipt Date: 20100709
  Transmission Date: 20110219
  Serious: Yes (Disabling)
  Sender: FDA-Public Use
  Company Number: GB-MILLENNIUM PHARMACEUTICALS, INC.-2010-03277

PATIENT

DRUGS (6)
  1. VELCADE [Suspect]
     Indication: MULTIPLE MYELOMA
     Dosage: UNK
     Route: 042
     Dates: start: 20100316, end: 20100604
  2. DEXAMETHASONE ACETATE [Concomitant]
     Indication: MULTIPLE MYELOMA
     Dosage: 10 MG, UNK
     Dates: start: 20100316, end: 20100604
  3. OXYCONTIN [Concomitant]
     Dosage: 10 MG, UNK
  4. OMEPRAZOLE [Concomitant]
     Dosage: 20 MG, UNK
  5. LEVOTHYROXINE SODIUM [Concomitant]
     Dosage: 150 UG, UNK
  6. SERTRALINE HCL [Concomitant]
     Dosage: 100 MG, UNK

REACTIONS (3)
  - DISEASE PROGRESSION [None]
  - DRUG INEFFECTIVE [None]
  - MULTIPLE MYELOMA [None]
